APPROVED DRUG PRODUCT: NEVANAC
Active Ingredient: NEPAFENAC
Strength: 0.1%
Dosage Form/Route: SUSPENSION/DROPS;OPHTHALMIC
Application: N021862 | Product #001
Applicant: HARROW EYE LLC
Approved: Aug 19, 2005 | RLD: Yes | RS: Yes | Type: RX

PATENTS:
Patent 7834059 | Expires: Jan 31, 2027